FAERS Safety Report 7589379-X (Version None)
Quarter: 2011Q3

REPORT INFORMATION
  Report Type: 
  Country: None (occurrence: None)
  Receive Date: 20110705
  Receipt Date: 20110622
  Transmission Date: 20111222
  Serious: Yes (Hospitalization, Other)
  Sender: FDA-Public Use
  Company Number: CH-ELI_LILLY_AND_COMPANY-CH201105004815

PATIENT
  Age: 64 Year
  Sex: Female

DRUGS (25)
  1. ZYPREXA [Suspect]
     Dosage: 15 MG, QD
     Route: 048
     Dates: start: 20100715, end: 20100719
  2. COSAAR PLUS [Concomitant]
     Dosage: 2 DF, QD
     Route: 048
     Dates: start: 20100716
  3. KEPPRA [Concomitant]
     Indication: EPILEPSY
     Dosage: UNK
     Dates: start: 20100722
  4. ZYPREXA [Suspect]
     Dosage: 10 MG, QD
     Route: 048
     Dates: start: 20100720, end: 20100721
  5. RISPERDAL [Concomitant]
     Dosage: 2 MG, QD
     Route: 048
     Dates: start: 20100729, end: 20100729
  6. LORAZEPAM [Concomitant]
     Dosage: 2 MG, QD
     Dates: start: 20100719, end: 20100719
  7. LORAZEPAM [Concomitant]
     Dosage: 2.5 MG, QD
     Dates: start: 20100729
  8. RISPERDAL [Concomitant]
     Dosage: 4 MG, QD
     Route: 048
     Dates: start: 20100730, end: 20100801
  9. RISPERDAL [Concomitant]
     Dosage: 1 MG, QD
     Route: 048
     Dates: start: 20100909
  10. RISPERDAL [Concomitant]
     Dosage: 2 MG, QD
     Route: 048
  11. NORFLOXACIN [Concomitant]
     Indication: URINARY TRACT INFECTION
     Dosage: 400 MG, QD
     Route: 048
     Dates: start: 20100721, end: 20100721
  12. KEPPRA [Concomitant]
     Dosage: 3.5 MG, UNK
  13. LORAZEPAM [Concomitant]
     Dosage: 4 MG, QD
     Dates: end: 20100706
  14. LORAZEPAM [Concomitant]
     Dosage: 1 MG, QD
     Dates: start: 20100707, end: 20100718
  15. LORAZEPAM [Concomitant]
     Dosage: 1 MG, QD
     Dates: start: 20100720
  16. RISPERDAL [Concomitant]
     Dosage: 2 MG, QD
     Route: 048
     Dates: start: 20100803, end: 20100908
  17. RISPERDAL [Concomitant]
     Dosage: 2 MG, QD
     Route: 048
     Dates: start: 20100715, end: 20100715
  18. RISPERDAL [Concomitant]
     Dosage: 4 MG, QD
     Route: 048
     Dates: start: 20100719, end: 20100721
  19. ASPIRIN [Concomitant]
     Dosage: 100 MG, QD
     Route: 048
     Dates: start: 20100710, end: 20100722
  20. KEPPRA [Concomitant]
     Dosage: 2.5 MG, UNK
  21. ZYPREXA [Suspect]
     Dosage: 20 MG, QD
     Route: 048
     Dates: end: 20100714
  22. COSAAR PLUS [Concomitant]
     Indication: HYPERTENSION
     Dosage: 1 DF, QD
     Route: 048
     Dates: start: 20100713, end: 20100715
  23. KEPPRA [Concomitant]
     Dosage: 2 MG, UNK
  24. RISPERDAL [Concomitant]
     Dosage: 3 MG, QD
     Route: 048
     Dates: start: 20100716, end: 20100718
  25. NORFLOXACIN [Concomitant]
     Dosage: 800 MG, QD
     Route: 048
     Dates: start: 20100722, end: 20100722

REACTIONS (22)
  - HYPERTENSION [None]
  - ARTERIOSCLEROSIS [None]
  - ASPARTATE AMINOTRANSFERASE INCREASED [None]
  - SUICIDAL BEHAVIOUR [None]
  - CHILLS [None]
  - EPILEPSY [None]
  - TRISMUS [None]
  - DRUG INEFFECTIVE [None]
  - MOVEMENT DISORDER [None]
  - DIZZINESS [None]
  - INHIBITORY DRUG INTERACTION [None]
  - DRUG INTERACTION [None]
  - BLOOD GLUCOSE INCREASED [None]
  - ALANINE AMINOTRANSFERASE INCREASED [None]
  - CEREBRAL INFARCTION [None]
  - MOOD ALTERED [None]
  - URINARY TRACT INFECTION [None]
  - SLOW RESPONSE TO STIMULI [None]
  - DISORIENTATION [None]
  - SPEECH DISORDER [None]
  - PLATELET COUNT INCREASED [None]
  - BLOOD THYROID STIMULATING HORMONE INCREASED [None]
